FAERS Safety Report 8239339-0 (Version None)
Quarter: 2012Q1

REPORT INFORMATION
  Report Type: 
  Country: None (occurrence: None)
  Receive Date: 20120326
  Receipt Date: 20120312
  Transmission Date: 20120608
  Serious: Yes (Hospitalization, Other)
  Sender: FDA-Public Use
  Company Number: CIP11002265

PATIENT
  Age: 60 Year
  Sex: Female

DRUGS (36)
  1. MAGNESIUM (MAGNESIUM) [Concomitant]
  2. GINKO BILOBA (GINKGO BILOBA) [Concomitant]
  3. HYDROCODONE BITARTRATE [Concomitant]
  4. CYCLOBENZAPRINE [Concomitant]
  5. AMBIEN [Concomitant]
  6. BETA CAROTENE (BETACAROTENE) [Concomitant]
  7. VITAMIN B COMPLEX (VITAMIN B COMPLEX) [Concomitant]
  8. VITAMIN D [Concomitant]
  9. GELATIN (GELATIN) [Concomitant]
  10. CELEBREX [Concomitant]
  11. BLACK COHOSH /01456805/ (CIMICIFUGA RACEMOSA ROOT) [Concomitant]
  12. VICODIN [Concomitant]
  13. ACTONEL [Suspect]
     Dosage: 35 MG ONCE WEEKLY, ORAL
     Route: 048
     Dates: start: 20030516, end: 20090801
  14. FOSAMAX [Suspect]
     Indication: PROPHYLAXIS
     Dosage: ORAL, 10 MG REGIMEN UNKNOWN, ORAL, 70 MG REGIMEN UNKNOWN, ORAL, 10 MG ONCE WEEKLY, ORAL
     Route: 048
     Dates: start: 20021203
  15. FOSAMAX [Suspect]
     Indication: OSTEOPOROSIS
     Dosage: ORAL, 10 MG REGIMEN UNKNOWN, ORAL, 70 MG REGIMEN UNKNOWN, ORAL, 10 MG ONCE WEEKLY, ORAL
     Route: 048
     Dates: start: 20021203
  16. FOSAMAX [Suspect]
     Indication: OSTEOPENIA
     Dosage: ORAL, 10 MG REGIMEN UNKNOWN, ORAL, 70 MG REGIMEN UNKNOWN, ORAL, 10 MG ONCE WEEKLY, ORAL
     Route: 048
     Dates: start: 20021203
  17. FOSAMAX [Suspect]
     Indication: PROPHYLAXIS
     Dosage: ORAL, 10 MG REGIMEN UNKNOWN, ORAL, 70 MG REGIMEN UNKNOWN, ORAL, 10 MG ONCE WEEKLY, ORAL
     Route: 048
     Dates: start: 19950101
  18. FOSAMAX [Suspect]
     Indication: OSTEOPOROSIS
     Dosage: ORAL, 10 MG REGIMEN UNKNOWN, ORAL, 70 MG REGIMEN UNKNOWN, ORAL, 10 MG ONCE WEEKLY, ORAL
     Route: 048
     Dates: start: 19950101
  19. FOSAMAX [Suspect]
     Indication: OSTEOPENIA
     Dosage: ORAL, 10 MG REGIMEN UNKNOWN, ORAL, 70 MG REGIMEN UNKNOWN, ORAL, 10 MG ONCE WEEKLY, ORAL
     Route: 048
     Dates: start: 19950101
  20. FOSAMAX [Suspect]
     Indication: PROPHYLAXIS
     Dosage: ORAL, 10 MG REGIMEN UNKNOWN, ORAL, 70 MG REGIMEN UNKNOWN, ORAL, 10 MG ONCE WEEKLY, ORAL
     Route: 048
     Dates: start: 20000401, end: 20010427
  21. FOSAMAX [Suspect]
     Indication: OSTEOPOROSIS
     Dosage: ORAL, 10 MG REGIMEN UNKNOWN, ORAL, 70 MG REGIMEN UNKNOWN, ORAL, 10 MG ONCE WEEKLY, ORAL
     Route: 048
     Dates: start: 20000401, end: 20010427
  22. FOSAMAX [Suspect]
     Indication: OSTEOPENIA
     Dosage: ORAL, 10 MG REGIMEN UNKNOWN, ORAL, 70 MG REGIMEN UNKNOWN, ORAL, 10 MG ONCE WEEKLY, ORAL
     Route: 048
     Dates: start: 20000401, end: 20010427
  23. FOSAMAX [Suspect]
     Indication: PROPHYLAXIS
     Dosage: ORAL, 10 MG REGIMEN UNKNOWN, ORAL, 70 MG REGIMEN UNKNOWN, ORAL, 10 MG ONCE WEEKLY, ORAL
     Route: 048
     Dates: end: 20090101
  24. FOSAMAX [Suspect]
     Indication: OSTEOPOROSIS
     Dosage: ORAL, 10 MG REGIMEN UNKNOWN, ORAL, 70 MG REGIMEN UNKNOWN, ORAL, 10 MG ONCE WEEKLY, ORAL
     Route: 048
     Dates: end: 20090101
  25. FOSAMAX [Suspect]
     Indication: OSTEOPENIA
     Dosage: ORAL, 10 MG REGIMEN UNKNOWN, ORAL, 70 MG REGIMEN UNKNOWN, ORAL, 10 MG ONCE WEEKLY, ORAL
     Route: 048
     Dates: end: 20090101
  26. FOSAMAX [Suspect]
     Indication: PROPHYLAXIS
     Dosage: ORAL, 10 MG REGIMEN UNKNOWN, ORAL, 70 MG REGIMEN UNKNOWN, ORAL, 10 MG ONCE WEEKLY, ORAL
     Route: 048
     Dates: start: 20010427, end: 20030516
  27. FOSAMAX [Suspect]
     Indication: OSTEOPOROSIS
     Dosage: ORAL, 10 MG REGIMEN UNKNOWN, ORAL, 70 MG REGIMEN UNKNOWN, ORAL, 10 MG ONCE WEEKLY, ORAL
     Route: 048
     Dates: start: 20010427, end: 20030516
  28. FOSAMAX [Suspect]
     Indication: OSTEOPENIA
     Dosage: ORAL, 10 MG REGIMEN UNKNOWN, ORAL, 70 MG REGIMEN UNKNOWN, ORAL, 10 MG ONCE WEEKLY, ORAL
     Route: 048
     Dates: start: 20010427, end: 20030516
  29. GARLIC /01570501/ (ALLIUM SATIVUM) [Concomitant]
  30. VITAMIN A /00056001/ (RETINOL) [Concomitant]
  31. VITAMIN C /00008001/ (ASCORBIC ACID) [Concomitant]
  32. CALCIUM CARBONATE [Concomitant]
  33. PROTONIX [Concomitant]
  34. GLUCOSAMINE CHONDROITIN /01625901/ (CHONDROITIN SULFATE, GLUCOSAMINE) [Concomitant]
  35. RECLAST [Suspect]
     Dosage: 5 MG ONCE ONLY, INTRAVENOUS
     Route: 042
     Dates: start: 20090828, end: 20090828
  36. VITAMIN E /00110501/ (TOCOPHEROL) [Concomitant]

REACTIONS (12)
  - STRESS FRACTURE [None]
  - LOW TURNOVER OSTEOPATHY [None]
  - FRACTURE DISPLACEMENT [None]
  - BONE DISORDER [None]
  - WEIGHT BEARING DIFFICULTY [None]
  - ARTHRALGIA [None]
  - FEMUR FRACTURE [None]
  - PAIN IN EXTREMITY [None]
  - SWELLING [None]
  - OEDEMA PERIPHERAL [None]
  - FALL [None]
  - OSTEOMALACIA [None]
